FAERS Safety Report 5749439-2 (Version None)
Quarter: 2008Q2

REPORT INFORMATION
  Report Type: 
  Country: None (occurrence: None)
  Receive Date: 20080527
  Receipt Date: 20080513
  Transmission Date: 20081010
  Serious: Yes (Congenital Anomaly)
  Sender: FDA-Public Use
  Company Number: A0679445A

PATIENT
  Sex: Female

DRUGS (6)
  1. PAXIL [Suspect]
     Indication: HEADACHE
     Dosage: 10MG TWICE PER DAY
     Dates: start: 20020901, end: 20030301
  2. LANTUS [Concomitant]
     Dates: start: 20010101
  3. INSULIN INSULATARD NPH NORDISK [Concomitant]
     Dates: start: 20010101
  4. VITAMIN TAB [Concomitant]
  5. ELAVIL [Concomitant]
     Dates: start: 20030301, end: 20030701
  6. EFFEXOR [Concomitant]

REACTIONS (3)
  - DRUG EXPOSURE DURING PREGNANCY [None]
  - INTRACARDIAC MASS [None]
  - SUPRAVENTRICULAR TACHYCARDIA [None]
